FAERS Safety Report 11805667 (Version 1)
Quarter: 2015Q4

REPORT INFORMATION
  Report Type: Report from Study
  Country: FR (occurrence: FR)
  Receive Date: 20151207
  Receipt Date: 20151207
  Transmission Date: 20160305
  Serious: Yes (Other)
  Sender: FDA-Public Use
  Company Number: FR-ROCHE-1671542

PATIENT

DRUGS (2)
  1. VEMURAFENIB [Suspect]
     Active Substance: VEMURAFENIB
     Route: 065
  2. VEMURAFENIB [Suspect]
     Active Substance: VEMURAFENIB
     Indication: METASTATIC MALIGNANT MELANOMA
     Route: 065

REACTIONS (12)
  - Uveitis [Unknown]
  - Alopecia [Unknown]
  - Squamous cell carcinoma [Unknown]
  - Blood creatinine increased [Unknown]
  - Diarrhoea [Unknown]
  - Fatigue [Unknown]
  - Panniculitis [Unknown]
  - Musculoskeletal pain [Unknown]
  - Palmoplantar keratoderma [Unknown]
  - Transaminases increased [Unknown]
  - Rash maculo-papular [Unknown]
  - Acute kidney injury [Unknown]
